FAERS Safety Report 12249820 (Version 2)
Quarter: 2019Q4

REPORT INFORMATION
  Report Type: Spontaneous
  Country: CH (occurrence: CH)
  Receive Date: 20160408
  Receipt Date: 20191019
  Transmission Date: 20200122
  Serious: Yes (Hospitalization, Other)
  Sender: FDA-Public Use
  Company Number: CH-TEVA-648363ISR

PATIENT
  Age: 74 Day
  Sex: Female
  Weight: 2.68 kg

DRUGS (1)
  1. IRFEN [Suspect]
     Active Substance: IBUPROFEN
     Dosage: 1200 MILLIGRAM DAILY; UNSPECIFIED STRENGTH
     Route: 064
     Dates: start: 20150316, end: 20150319

REACTIONS (6)
  - Premature baby [Recovered/Resolved]
  - Neonatal respiratory distress [Recovered/Resolved]
  - Infantile apnoea [Recovered/Resolved]
  - Hypoglycaemia neonatal [Recovered/Resolved]
  - Hyperbilirubinaemia neonatal [Recovered/Resolved]
  - Maternal exposure during pregnancy [Recovered/Resolved]

NARRATIVE: CASE EVENT DATE: 20150316
